FAERS Safety Report 5666982-5 (Version None)
Quarter: 2008Q1

REPORT INFORMATION
  Report Type: 
  Country: None (occurrence: None)
  Receive Date: 20080315
  Receipt Date: 20080108
  Transmission Date: 20080703
  Serious: No
  Sender: FDA-Public Use
  Company Number: US-ABBOTT-08P-163-0432958-00

PATIENT
  Sex: Male
  Weight: 93.07 kg

DRUGS (4)
  1. HUMIRA [Suspect]
     Indication: CROHN'S DISEASE
     Route: 058
     Dates: start: 20070601, end: 20071217
  2. HUMIRA [Suspect]
     Route: 058
     Dates: start: 20071217, end: 20071228
  3. HUMIRA [Suspect]
     Route: 058
     Dates: start: 20080101
  4. PREDNISONE [Concomitant]
     Indication: CROHN'S DISEASE
     Route: 048

REACTIONS (3)
  - AMNESIA [None]
  - DRUG INEFFECTIVE [None]
  - NASOPHARYNGITIS [None]
